FAERS Safety Report 7776836-6 (Version None)
Quarter: 2011Q3

REPORT INFORMATION
  Report Type: 
  Country: None (occurrence: None)
  Receive Date: 20110926
  Receipt Date: 20110912
  Transmission Date: 20111222
  Serious: Yes (Other)
  Sender: FDA-Public Use
  Company Number: ES-MYLANLABS-2011S1019426

PATIENT
  Age: 30 Year
  Sex: Female

DRUGS (7)
  1. METHOTREXATE [Suspect]
     Indication: TAKAYASU'S ARTERITIS
     Dosage: 15 MG/WEEK
     Route: 048
  2. PREDNISONE [Suspect]
     Dosage: 15 MG/24H IN DESCENDING PATTERN; LATER INCREASED TO 60 MG/DAY
     Route: 065
  3. PREDNISONE [Suspect]
     Indication: TAKAYASU'S ARTERITIS
     Route: 065
  4. PREDNISONE [Suspect]
     Dosage: INCREASED ON 2 OCCASIONS TO 60 MG/DAY; THEN REDUCED TO 10 MG/DAY
     Route: 065
  5. PREDNISONE [Suspect]
     Dosage: 10 MG/DAY
     Route: 065
  6. AZATHIOPRINE [Suspect]
     Indication: TAKAYASU'S ARTERITIS
     Dosage: 100 MG/DAY
     Route: 065
  7. INFLIXIMAB [Suspect]
     Indication: TAKAYASU'S ARTERITIS
     Route: 042

REACTIONS (8)
  - DIZZINESS [None]
  - MATERNAL EXPOSURE DURING PREGNANCY [None]
  - MYCOBACTERIUM AVIUM COMPLEX INFECTION [None]
  - HEADACHE [None]
  - MALAISE [None]
  - C-REACTIVE PROTEIN INCREASED [None]
  - RED BLOOD CELL SEDIMENTATION RATE INCREASED [None]
  - PREGNANCY [None]
